FAERS Safety Report 9069229 (Version 1)
Quarter: 2013Q1

REPORT INFORMATION
  Report Type: Report from Study
  Country: US (occurrence: US)
  Receive Date: 20130131
  Receipt Date: 20130131
  Transmission Date: 20140127
  Serious: No
  Sender: FDA-Public Use
  Company Number: US-ABBOTT-12P-163-0979916-00

PATIENT
  Sex: Female
  Weight: 78.09 kg

DRUGS (20)
  1. HUMIRA [Suspect]
     Indication: PSORIATIC ARTHROPATHY
     Route: 058
     Dates: start: 20120403
  2. PANTOPRAZOLE [Concomitant]
     Indication: GASTROOESOPHAGEAL REFLUX DISEASE
  3. NAMENDA [Concomitant]
     Indication: MEMORY IMPAIRMENT
  4. EFFEXOR [Concomitant]
     Indication: DEPRESSION
  5. AMILODIPINE [Concomitant]
     Indication: HYPERTENSION
     Dosage: 10/20 MG
  6. HYTIN [Concomitant]
     Indication: HYPERHIDROSIS
  7. FOLIC ACID [Concomitant]
     Indication: PRODUCT USED FOR UNKNOWN INDICATION
  8. NUCYTA [Concomitant]
     Indication: PAIN
  9. OPANA ER [Concomitant]
     Indication: PRODUCT USED FOR UNKNOWN INDICATION
  10. METHOTREXATE [Concomitant]
     Indication: PRODUCT USED FOR UNKNOWN INDICATION
  11. HYDOCORTISONE [Concomitant]
     Indication: PRURITUS
  12. COMPAZINE [Concomitant]
     Indication: PRODUCT USED FOR UNKNOWN INDICATION
  13. NUBIGIL [Concomitant]
     Indication: ILL-DEFINED DISORDER
  14. KLOR-CON 10 [Concomitant]
     Indication: OEDEMA PERIPHERAL
  15. BUMETADINE [Concomitant]
     Indication: PRODUCT USED FOR UNKNOWN INDICATION
  16. VIT D [Concomitant]
     Indication: PRODUCT USED FOR UNKNOWN INDICATION
  17. MAGNESIUM [Concomitant]
     Indication: PRODUCT USED FOR UNKNOWN INDICATION
  18. TACLONEX.005 MG TOPICAL [Concomitant]
     Indication: PRODUCT USED FOR UNKNOWN INDICATION
     Route: 061
  19. ELTA-TAR TOPICAL [Concomitant]
     Indication: PRODUCT USED FOR UNKNOWN INDICATION
     Route: 061
  20. SLUOCINOLE ACETONIDE [Concomitant]
     Indication: SKIN DISORDER

REACTIONS (1)
  - Tremor [Not Recovered/Not Resolved]
